FAERS Safety Report 13556132 (Version 2)
Quarter: 2018Q2

REPORT INFORMATION
  Report Type: Spontaneous
  Country: US (occurrence: US)
  Receive Date: 20170517
  Receipt Date: 20180515
  Transmission Date: 20180711
  Serious: No
  Sender: FDA-Public Use
  Company Number: US-SA-2016SA223532

PATIENT
  Age: 32 Year
  Sex: Female

DRUGS (4)
  1. SOLOSTAR [Suspect]
     Active Substance: DEVICE
     Indication: TYPE 1 DIABETES MELLITUS
     Dates: start: 2014
  2. TOUJEO [Suspect]
     Active Substance: INSULIN GLARGINE
     Indication: TYPE 1 DIABETES MELLITUS
     Dosage: DOSE:10 UNIT(S)
     Route: 065
     Dates: start: 2014
  3. SOLOSTAR [Suspect]
     Active Substance: DEVICE
     Indication: TYPE 1 DIABETES MELLITUS
  4. TOUJEO [Suspect]
     Active Substance: INSULIN GLARGINE
     Indication: TYPE 1 DIABETES MELLITUS
     Dosage: DOSE:20 UNIT(S)
     Route: 051

REACTIONS (3)
  - Speech disorder [Unknown]
  - Blood glucose decreased [Unknown]
  - Product use issue [Unknown]
